FAERS Safety Report 23922856 (Version 1)
Quarter: 2024Q2

REPORT INFORMATION
  Report Type: Spontaneous
  Country: US (occurrence: US)
  Receive Date: 20240531
  Receipt Date: 20240531
  Transmission Date: 20240716
  Serious: No
  Sender: FDA-Public Use
  Company Number: US-JNJFOC-20240516953

PATIENT

DRUGS (1)
  1. MAXIMUM STRENGTH PEPCID AC ICY COOL MINT [Suspect]
     Active Substance: FAMOTIDINE
     Indication: Ulcer
     Dosage: TOOK ONE BEFORE AND ANOTHER ONE AFTER EATING
     Route: 065

REACTIONS (2)
  - Malaise [Unknown]
  - Product use in unapproved indication [Unknown]
